FAERS Safety Report 19470873 (Version 1)
Quarter: 2021Q2

REPORT INFORMATION
  Report Type: Spontaneous
  Country: US (occurrence: US)
  Receive Date: 20210629
  Receipt Date: 20210629
  Transmission Date: 20210717
  Serious: No
  Sender: FDA-Public Use
  Company Number: US-ALLERGAN-2119160US

PATIENT
  Age: 85 Year
  Sex: Female

DRUGS (3)
  1. COSOPT PF [Suspect]
     Active Substance: DORZOLAMIDE HYDROCHLORIDE\TIMOLOL MALEATE
     Dosage: UNK
     Dates: start: 20210413
  2. DURYSTA [Suspect]
     Active Substance: BIMATOPROST
     Indication: OPEN ANGLE GLAUCOMA
     Dosage: 10 ?G, SINGLE
     Route: 031
     Dates: start: 20210211, end: 20210211
  3. DURYSTA [Suspect]
     Active Substance: BIMATOPROST
     Indication: OCULAR SURFACE DISEASE

REACTIONS (5)
  - Off label use [Unknown]
  - Eye inflammation [Not Recovered/Not Resolved]
  - Anterior chamber cell [Unknown]
  - Drug ineffective [Unknown]
  - Iritis [Not Recovered/Not Resolved]

NARRATIVE: CASE EVENT DATE: 20210413
